FAERS Safety Report 15865160 (Version 10)
Quarter: 2020Q4

REPORT INFORMATION
  Report Type: Report from Study
  Country: None (occurrence: BE)
  Receive Date: 20190124
  Receipt Date: 20201215
  Transmission Date: 20210113
  Serious: Yes (Hospitalization, Other)
  Sender: FDA-Public Use
  Company Number: BE-ABBVIE-18S-013-2601811-00

PATIENT
  Age: 67 Year
  Sex: Male
  Weight: 70 kg

DRUGS (5)
  1. DUODOPA [Suspect]
     Active Substance: CARBIDOPA\LEVODOPA
     Indication: PARKINSON^S DISEASE
     Dosage: MD= 8ML CD= 4.9ML/HR DURING 16HRS  ED= 3ML
     Route: 050
     Dates: start: 20130403, end: 20130419
  2. PROLOPA [Concomitant]
     Active Substance: BENSERAZIDE\LEVODOPA
     Indication: PARKINSON^S DISEASE
     Dosage: WHEN NECESSARY
     Route: 048
  3. DUODOPA [Suspect]
     Active Substance: CARBIDOPA\LEVODOPA
     Dosage: MD= 8ML CD= 4.4ML/HR DURING 16HRS  ED= 3.5ML
     Route: 050
     Dates: start: 20180104
  4. DUODOPA [Suspect]
     Active Substance: CARBIDOPA\LEVODOPA
     Dosage: DOSES CONTINUOUSLY MONITORED AND ADAPTED
     Route: 050
     Dates: start: 20130419, end: 20180104
  5. PROLOPA [Concomitant]
     Active Substance: BENSERAZIDE\LEVODOPA
     Indication: PARKINSON^S DISEASE
     Dosage: FORM STRENGTH: 100MG/25MG PROLOPA 125 DISP
     Route: 048

REACTIONS (14)
  - Implantation complication [Unknown]
  - Dyskinesia [Unknown]
  - Stoma site hypergranulation [Not Recovered/Not Resolved]
  - Muscle spasms [Unknown]
  - Behaviour disorder [Unknown]
  - Initial insomnia [Recovered/Resolved]
  - Fear [Recovering/Resolving]
  - Fatigue [Unknown]
  - Stoma site discharge [Not Recovered/Not Resolved]
  - Fall [Recovered/Resolved]
  - Stoma site erythema [Not Recovered/Not Resolved]
  - Stress [Recovering/Resolving]
  - Wrist fracture [Recovering/Resolving]
  - Anxiety [Not Recovered/Not Resolved]

NARRATIVE: CASE EVENT DATE: 201812
